FAERS Safety Report 21992002 (Version 3)
Quarter: 2023Q2

REPORT INFORMATION
  Report Type: Spontaneous
  Country: JP (occurrence: JP)
  Receive Date: 20230214
  Receipt Date: 20230521
  Transmission Date: 20230721
  Serious: Yes (Disabling, Other)
  Sender: FDA-Public Use
  Company Number: JP-002147023-NVSJ2023JP001088

PATIENT
  Age: 79 Year
  Sex: Male

DRUGS (2)
  1. BEOVU [Suspect]
     Active Substance: BROLUCIZUMAB-DBLL
     Indication: Age-related macular degeneration
     Dosage: 6 MG
     Route: 031
     Dates: start: 20220830, end: 20220830
  2. BEOVU [Suspect]
     Active Substance: BROLUCIZUMAB-DBLL
     Dosage: 6 MG
     Route: 031
     Dates: start: 20221101, end: 20221101

REACTIONS (9)
  - Retinal vascular occlusion [Not Recovered/Not Resolved]
  - Vitreous opacities [Recovering/Resolving]
  - Blindness transient [Recovering/Resolving]
  - Keratic precipitates [Recovered/Resolved]
  - Retinal vasculitis [Recovered/Resolved with Sequelae]
  - Retinal perivascular sheathing [Unknown]
  - Retinal haemorrhage [Not Recovered/Not Resolved]
  - Vitreous floaters [Not Recovered/Not Resolved]
  - Eye inflammation [Recovered/Resolved]

NARRATIVE: CASE EVENT DATE: 20221103
